FAERS Safety Report 14110534 (Version 2)
Quarter: 2020Q3

REPORT INFORMATION
  Report Type: Report from Study
  Country: US (occurrence: US)
  Receive Date: 20171020
  Receipt Date: 20171027
  Transmission Date: 20201104
  Serious: Yes (Hospitalization)
  Sender: FDA-Public Use
  Company Number: US-JNJFOC-20171016201

PATIENT
  Age: 63 Year
  Sex: Female

DRUGS (6)
  1. DARATUMUMAB [Suspect]
     Active Substance: DARATUMUMAB
     Indication: PLASMA CELL MYELOMA
     Dosage: (ON DAYS 1, 8, 15, 22 OF C1 + 2; ON DAYS 1 + 15 OF C3 TO 6; AND ON DAY 1 OF EACH 28DAY CYCLE).
     Route: 042
     Dates: start: 20170830
  2. DARATUMUMAB [Suspect]
     Active Substance: DARATUMUMAB
     Route: 042
  3. ATEZOLIZUMAB. [Suspect]
     Active Substance: ATEZOLIZUMAB
     Indication: PLASMA CELL MYELOMA
     Dosage: DAYS 2 AND 16 OF CYCLE 1 AND ON DAYS 1 AND 15 OF EACH 28?DAY CYCLE).
     Route: 042
     Dates: start: 20170831
  4. POMALIDOMIDE [Concomitant]
     Active Substance: POMALIDOMIDE
     Indication: PLASMA CELL MYELOMA
     Dosage: MOST RECENT DOSE : 10?OCT?2017
     Route: 048
  5. DEXAMETHASONE. [Concomitant]
     Active Substance: DEXAMETHASONE
     Indication: PRODUCT USED FOR UNKNOWN INDICATION
     Dosage: MOST RECENT DOSE : 4?OCT?2017
     Route: 048
  6. ZOMETA [Concomitant]
     Active Substance: ZOLEDRONIC ACID
     Indication: PRODUCT USED FOR UNKNOWN INDICATION
     Dosage: AFTER A 3 MONTH BREAK
     Dates: start: 20171004

REACTIONS (1)
  - Acute kidney injury [Recovered/Resolved]

NARRATIVE: CASE EVENT DATE: 20171010
